FAERS Safety Report 8186294-8 (Version None)
Quarter: 2012Q1

REPORT INFORMATION
  Report Type: 
  Country: None (occurrence: None)
  Receive Date: 20120301
  Receipt Date: 20120220
  Transmission Date: 20120608
  Serious: Yes (Hospitalization)
  Sender: FDA-Public Use
  Company Number: 216865

PATIENT
  Age: 93 Year
  Sex: Female

DRUGS (10)
  1. INNOHEP [Suspect]
     Indication: THROMBOPHLEBITIS
     Dosage: TOPICAL
     Route: 061
     Dates: start: 20101209, end: 20101215
  2. DIFFU K (POTSASSIUM CHLORIDE) [Concomitant]
  3. AMLODIPINE BESYLATE [Concomitant]
  4. ACEBUTOLOL [Concomitant]
  5. SECTRAL [Concomitant]
  6. FUROSEMIDE [Concomitant]
  7. ZOCOR [Concomitant]
  8. COUMADINE (COUMARIN) [Suspect]
     Indication: THROMBOPHLEBITIS
     Dosage: ORAL
     Route: 048
     Dates: start: 20101209, end: 20101215
  9. IRBESARTAN [Concomitant]
  10. OMEPRAZOLE [Concomitant]

REACTIONS (3)
  - OVERDOSE [None]
  - MICROCYTIC ANAEMIA [None]
  - INTERNATIONAL NORMALISED RATIO INCREASED [None]
